FAERS Safety Report 5956733-9 (Version None)
Quarter: 2008Q4

REPORT INFORMATION
  Report Type: 
  Country: None (occurrence: None)
  Receive Date: 20081104
  Receipt Date: 20080812
  Transmission Date: 20090506
  Serious: Yes (Other)
  Sender: FDA-Public Use
  Company Number: 580772

PATIENT
  Age: 76 Year
  Sex: Female

DRUGS (1)
  1. BONIVA [Suspect]
     Indication: OSTEOPOROSIS PROPHYLAXIS
     Dosage: 3 MG INTRAVENOUS
     Route: 042
     Dates: start: 20070801

REACTIONS (2)
  - BLOOD PRESSURE INCREASED [None]
  - OESOPHAGEAL SPASM [None]
